FAERS Safety Report 5633368-9 (Version None)
Quarter: 2008Q1

REPORT INFORMATION
  Report Type: 
  Country: None (occurrence: None)
  Receive Date: 20080219
  Receipt Date: 20080109
  Transmission Date: 20080703
  Serious: Yes (Other)
  Sender: FDA-Public Use
  Company Number: 023766

PATIENT
  Sex: Female

DRUGS (5)
  1. MEDROXYPROGESTERONE ACETATE [Suspect]
     Dosage: ORAL
     Route: 048
     Dates: start: 19960101
  2. PREMARIN [Suspect]
     Dosage: ORAL
     Route: 048
     Dates: start: 19960101
  3. CYCRIN [Suspect]
     Dosage: ORAL
     Route: 048
     Dates: start: 19970101
  4. PREMPRO [Suspect]
     Dosage: ORAL
     Route: 048
     Dates: start: 19980101
  5. ESTRATEST [Suspect]
     Dosage: ORAL
     Route: 048
     Dates: start: 20010101

REACTIONS (1)
  - BREAST CANCER [None]
